FAERS Safety Report 14282716 (Version 3)
Quarter: 2018Q1

REPORT INFORMATION
  Report Type: Spontaneous
  Country: US (occurrence: US)
  Receive Date: 20171213
  Receipt Date: 20180215
  Transmission Date: 20180508
  Serious: No
  Sender: FDA-Public Use
  Company Number: US-LUNDBECK-DKLU2041236

PATIENT
  Age: 65 Year
  Sex: Male

DRUGS (3)
  1. NORTHERA [Suspect]
     Active Substance: DROXIDOPA
     Indication: ORTHOSTATIC HYPOTENSION
     Route: 048
     Dates: start: 20171201
  2. NORTHERA [Suspect]
     Active Substance: DROXIDOPA
     Dosage: TITRATION
     Route: 048
  3. NORTHERA [Suspect]
     Active Substance: DROXIDOPA
     Indication: MULTIPLE SYSTEM ATROPHY
     Dosage: SCHEDULE C / TITRATING
     Route: 048
     Dates: start: 201712

REACTIONS (4)
  - Dizziness [Not Recovered/Not Resolved]
  - Myalgia [Unknown]
  - Headache [Recovered/Resolved]
  - Hypertension [Recovered/Resolved]

NARRATIVE: CASE EVENT DATE: 201712
